FAERS Safety Report 13714312 (Version 10)
Quarter: 2019Q3

REPORT INFORMATION
  Report Type: Report from Study
  Country: JP (occurrence: JP)
  Receive Date: 20170704
  Receipt Date: 20190904
  Transmission Date: 20191004
  Serious: Yes (Death, Hospitalization)
  Sender: FDA-Public Use
  Company Number: JP-ACTELION-A-CH2017-151504

PATIENT
  Age: 67 Year
  Sex: Male
  Weight: 91.6 kg

DRUGS (31)
  1. UPTRAVI [Suspect]
     Active Substance: SELEXIPAG
     Dosage: 1.6 MG, BID
     Route: 048
     Dates: start: 20181031, end: 20190625
  2. CRESTOR [Concomitant]
     Active Substance: ROSUVASTATIN CALCIUM
     Indication: HYPERLIPIDAEMIA
     Dosage: 2.5 MG, QD
     Dates: end: 20190625
  3. ZYLORIC [Concomitant]
     Active Substance: ALLOPURINOL
     Dosage: 100 MG, QD
     Dates: end: 20190625
  4. OXYGEN. [Concomitant]
     Active Substance: OXYGEN
  5. UPTRAVI [Suspect]
     Active Substance: SELEXIPAG
     Dosage: 1.2 MG, BID
     Route: 048
     Dates: start: 20181025, end: 20181027
  6. SAMSCA [Suspect]
     Active Substance: TOLVAPTAN
     Dosage: 7.5 MG, QD
     Route: 048
     Dates: end: 20190625
  7. TRAZENTA [Concomitant]
     Active Substance: LINAGLIPTIN
     Indication: DIABETES MELLITUS
     Dosage: 5 MG, QD
     Dates: start: 20160109, end: 20190625
  8. AMARYL [Concomitant]
     Active Substance: GLIMEPIRIDE
  9. TREPROST [Concomitant]
     Active Substance: TREPROSTINIL
     Indication: PULMONARY HYPERTENSION
     Dosage: UNK
     Dates: start: 20181112, end: 20181126
  10. UPTRAVI [Suspect]
     Active Substance: SELEXIPAG
     Dosage: 0.4 MG, BID
     Route: 048
     Dates: start: 20181010, end: 20181015
  11. ADALAT [Concomitant]
     Active Substance: NIFEDIPINE
     Indication: RIGHT VENTRICULAR FAILURE
     Dosage: 20 MG, QD
  12. FERROMIA [Concomitant]
     Active Substance: SODIUM FERROUS CITRATE
     Dosage: 100 MG, QD
     Dates: start: 20190130, end: 20190625
  13. UPTRAVI [Suspect]
     Active Substance: SELEXIPAG
     Dosage: 1.0 MG, BID
     Route: 048
     Dates: start: 20181022, end: 20181024
  14. SAMSCA [Suspect]
     Active Substance: TOLVAPTAN
     Indication: RIGHT VENTRICULAR FAILURE
     Dosage: 13 MG, QD
     Route: 048
     Dates: start: 20170129, end: 20170201
  15. SAMSCA [Suspect]
     Active Substance: TOLVAPTAN
     Dosage: 5.0 MG, QD
     Route: 048
  16. BERASUS [Concomitant]
     Active Substance: BERAPROST SODIUM
     Indication: PULMONARY ARTERIAL HYPERTENSION
     Dosage: 360 MCG, QD
     Dates: start: 20160412, end: 20190625
  17. ADCIRCA [Concomitant]
     Active Substance: TADALAFIL
     Indication: PULMONARY ARTERIAL HYPERTENSION
     Dosage: 40 MG, QD
     Dates: start: 20130306, end: 20190625
  18. REVATIO [Concomitant]
     Active Substance: SILDENAFIL CITRATE
     Indication: PULMONARY ARTERIAL HYPERTENSION
     Dosage: 60 MG, QD
     Dates: start: 20140927, end: 20190625
  19. SLOW K [Concomitant]
     Active Substance: POTASSIUM CHLORIDE
  20. KCL CORRECTIVE [Concomitant]
  21. UPTRAVI [Suspect]
     Active Substance: SELEXIPAG
     Indication: PULMONARY ARTERIAL HYPERTENSION
     Dosage: 0.4 MG, QD
     Route: 048
     Dates: start: 20170127, end: 20170206
  22. UPTRAVI [Suspect]
     Active Substance: SELEXIPAG
     Dosage: 0.8 MG, BID
     Route: 048
     Dates: start: 20181019, end: 20181021
  23. SAMSCA [Suspect]
     Active Substance: TOLVAPTAN
     Indication: CARDIAC FAILURE
     Dosage: 7.5 MG, QD
     Route: 048
     Dates: start: 20160113, end: 20170128
  24. LASIX [Concomitant]
     Active Substance: FUROSEMIDE
     Indication: RIGHT VENTRICULAR FAILURE
     Dosage: 40 MG, QD
     Dates: end: 20190625
  25. WARFARIN [Concomitant]
     Active Substance: WARFARIN
     Indication: ATRIAL FIBRILLATION
     Dosage: 5 MG, QD
     Dates: start: 20140927, end: 20190625
  26. NU-LOTAN [Concomitant]
     Active Substance: LOSARTAN POTASSIUM
     Dosage: 50 MG, QD
  27. OPSUMIT [Suspect]
     Active Substance: MACITENTAN
     Indication: PULMONARY ARTERIAL HYPERTENSION
     Dosage: 10 MG, QD
     Route: 048
     Dates: start: 20160607, end: 20190625
  28. UPTRAVI [Suspect]
     Active Substance: SELEXIPAG
     Dosage: 0.6 MG, BID
     Route: 048
     Dates: start: 20181016, end: 20181018
  29. UPTRAVI [Suspect]
     Active Substance: SELEXIPAG
     Dosage: 1.4 MG, BID
     Route: 048
     Dates: start: 20181028, end: 20181030
  30. SAMSCA [Suspect]
     Active Substance: TOLVAPTAN
     Indication: CARDIAC FAILURE
     Dosage: 7.5 MG, QD
     Route: 048
     Dates: start: 20170214
  31. PANTOL [Concomitant]
     Active Substance: DEXPANTHENOL

REACTIONS (14)
  - Weight increased [Fatal]
  - Pulmonary arterial hypertension [Fatal]
  - Concomitant disease aggravated [Fatal]
  - Oliguria [Fatal]
  - Bacteraemia [Recovered/Resolved]
  - Nasopharyngitis [Recovering/Resolving]
  - Generalised oedema [Fatal]
  - Catheter removal [Unknown]
  - Cardiac failure [Fatal]
  - Pleural effusion [Fatal]
  - Treatment noncompliance [Unknown]
  - Pyrexia [Recovered/Resolved]
  - Right ventricular failure [Not Recovered/Not Resolved]
  - Diarrhoea [Recovering/Resolving]

NARRATIVE: CASE EVENT DATE: 20170118
